FAERS Safety Report 10177530 (Version 1)
Quarter: 2014Q2

REPORT INFORMATION
  Report Type: Spontaneous
  Country: US (occurrence: US)
  Receive Date: 20140516
  Receipt Date: 20140516
  Transmission Date: 20141212
  Serious: No
  Sender: FDA-Public Use
  Company Number: US-BAXTER-2014BAX023193

PATIENT
  Sex: Female

DRUGS (4)
  1. DIANEAL LOW CALCIUM [Suspect]
     Indication: RENAL FAILURE CHRONIC
     Route: 033
     Dates: start: 201211
  2. BUPROPION [Concomitant]
     Indication: ANXIETY
     Route: 048
  3. LABETALOL [Concomitant]
     Indication: BLOOD PRESSURE
     Route: 048
  4. NIFEDIPINE [Concomitant]
     Indication: BLOOD PRESSURE
     Route: 048

REACTIONS (3)
  - Weight decreased [Recovering/Resolving]
  - Hypophagia [Recovering/Resolving]
  - Nausea [Recovering/Resolving]
